FAERS Safety Report 10426067 (Version 1)
Quarter: 2014Q3

REPORT INFORMATION
  Report Type: Report from Study
  Country: BR (occurrence: BR)
  Receive Date: 20140903
  Receipt Date: 20140903
  Transmission Date: 20150326
  Serious: Yes (Hospitalization)
  Sender: FDA-Public Use
  Company Number: BR-ROCHE-1457040

PATIENT
  Sex: Female
  Weight: 75 kg

DRUGS (5)
  1. INDOCID [Concomitant]
     Active Substance: INDOMETHACIN
  2. ACTEMRA [Suspect]
     Active Substance: TOCILIZUMAB
     Indication: RHEUMATOID ARTHRITIS
     Route: 042
     Dates: start: 201203
  3. OMEPRAZOLE. [Concomitant]
     Active Substance: OMEPRAZOLE
  4. RIVOTRIL [Concomitant]
     Active Substance: CLONAZEPAM
     Route: 065
  5. METICORTEN [Concomitant]
     Active Substance: PREDNISONE

REACTIONS (5)
  - Drug effect decreased [Unknown]
  - Spinal fracture [Unknown]
  - Arthralgia [Unknown]
  - Abasia [Unknown]
  - Rheumatoid arthritis [Unknown]
